FAERS Safety Report 7755101-7 (Version None)
Quarter: 2011Q3

REPORT INFORMATION
  Report Type: 
  Country: None (occurrence: None)
  Receive Date: 20110916
  Receipt Date: 20110912
  Transmission Date: 20111222
  Serious: No
  Sender: FDA-Public Use
  Company Number: US-PFIZER INC-2011215519

PATIENT
  Sex: Male

DRUGS (1)
  1. NEURONTIN [Suspect]
     Indication: CERVICOBRACHIAL SYNDROME
     Dosage: 2400 MG, DAILY

REACTIONS (6)
  - CERVICOBRACHIAL SYNDROME [None]
  - PAIN [None]
  - PAIN IN EXTREMITY [None]
  - CONSTIPATION [None]
  - INFLUENZA LIKE ILLNESS [None]
  - DIARRHOEA [None]
